FAERS Safety Report 6093857-2 (Version None)
Quarter: 2009Q1

REPORT INFORMATION
  Report Type: 
  Country: None (occurrence: None)
  Receive Date: 20090226
  Receipt Date: 20090217
  Transmission Date: 20090719
  Serious: Yes (Other)
  Sender: FDA-Public Use
  Company Number: US-PFIZER INC-2009171777

PATIENT
  Sex: Male
  Weight: 68.038 kg

DRUGS (1)
  1. NARDIL [Suspect]
     Indication: ANXIETY

REACTIONS (3)
  - DIABETES MELLITUS [None]
  - INSOMNIA [None]
  - SINUSITIS [None]
